FAERS Safety Report 8406391-9 (Version None)
Quarter: 2012Q2

REPORT INFORMATION
  Report Type: 
  Country: None (occurrence: None)
  Receive Date: 20120604
  Receipt Date: 20120531
  Transmission Date: 20120825
  Serious: Yes (Death)
  Sender: FDA-Public Use
  Company Number: PHHY2012CN046999

PATIENT

DRUGS (3)
  1. BASILIXIMAB [Suspect]
     Indication: LIVER TRANSPLANT
     Dosage: 20 MG, UNK
  2. TACROLIMUS [Concomitant]
     Indication: LIVER TRANSPLANT
     Dosage: 0.04 MG/KG/DAY
  3. METHYLPREDNISOLONE [Concomitant]
     Dosage: 500 MG, UNK

REACTIONS (3)
  - HEPATIC FAILURE [None]
  - BILE DUCT NECROSIS [None]
  - BILIARY ISCHAEMIA [None]
